FAERS Safety Report 8821628 (Version 1)
Quarter: 2012Q4

REPORT INFORMATION
  Report Type: 
  Country: US (occurrence: US)
  Receive Date: 20121002
  Receipt Date: 20121002
  Transmission Date: 20130627
  Serious: No
  Sender: FDA-Public Use
  Company Number: US-ASTRAZENECA-2012SE71447

PATIENT
  Age: 52 Year
  Sex: Female

DRUGS (2)
  1. SYMBICORT PMDI [Suspect]
     Route: 055
  2. SPIRIVA [Concomitant]

REACTIONS (4)
  - Dyspnoea [Unknown]
  - Anxiety [Unknown]
  - Gait disturbance [Unknown]
  - Drug dose omission [Unknown]
